FAERS Safety Report 6574196-X (Version None)
Quarter: 2010Q1

REPORT INFORMATION
  Report Type: 
  Country: None (occurrence: None)
  Receive Date: 20100208
  Receipt Date: 20100201
  Transmission Date: 20100710
  Serious: No
  Sender: FDA-Public Use
  Company Number: US-BAYER-201013109NA

PATIENT
  Sex: Female

DRUGS (2)
  1. MAGNEVIST [Suspect]
     Indication: NUCLEAR MAGNETIC RESONANCE IMAGING
     Dosage: AS USED: 15 ML
     Route: 042
  2. ^MEDICATED^ [Concomitant]
     Indication: PREMEDICATION

REACTIONS (2)
  - PRURITUS [None]
  - URTICARIA [None]
